FAERS Safety Report 5416508-6 (Version None)
Quarter: 2007Q3

REPORT INFORMATION
  Report Type: 
  Country: None (occurrence: None)
  Receive Date: 20070814
  Receipt Date: 20070731
  Transmission Date: 20080115
  Serious: Yes (Life-Threatening)
  Sender: FDA-Public Use
  Company Number: RENA-12236

PATIENT
  Age: 72 Year
  Sex: Female
  Weight: 35.5 kg

DRUGS (10)
  1. RENAGEL [Suspect]
     Indication: HYPERPHOSPHATAEMIA
     Dosage: 1 G TID PO
     Route: 048
     Dates: start: 20031016, end: 20070314
  2. CALCIUM POLYSTYRENE SULFONATE [Suspect]
     Indication: HYPERKALAEMIA
     Dates: start: 20050625, end: 20061007
  3. AMLODIPINE BESYLATE [Concomitant]
  4. ENALAPRIL MALEATE [Concomitant]
  5. CARVEDILOL [Concomitant]
  6. BLOPRESS. MFR: TAKEDA CHEMICAL IND. [Concomitant]
  7. SPIRONOLACTONE [Concomitant]
  8. ASPIRIN [Concomitant]
  9. ALLOPURINOL [Concomitant]
  10. ANPLAG. MFR: TOKYO TANABE [Concomitant]

REACTIONS (4)
  - CONTINUOUS HAEMODIAFILTRATION [None]
  - DIVERTICULUM [None]
  - HAEMODIALYSIS [None]
  - LARGE INTESTINE PERFORATION [None]
